FAERS Safety Report 9301670 (Version 1)
Quarter: 2013Q2

REPORT INFORMATION
  Report Type: Spontaneous
  Country: US (occurrence: None)
  Receive Date: 20130520
  Receipt Date: 20130520
  Transmission Date: 20140414
  Serious: Yes (Other)
  Sender: FDA-Public Use
  Company Number: None

PATIENT
  Age: 58 Year
  Sex: Male
  Weight: 77.11 kg

DRUGS (1)
  1. LEVOFLOXACIN [Suspect]
     Dosage: 500MG 1 DAY 7QUANTITY
     Dates: start: 20130302, end: 20130308

REACTIONS (2)
  - Pain in extremity [None]
  - Joint injury [None]
